FAERS Safety Report 5892056-4 (Version None)
Quarter: 2008Q3

REPORT INFORMATION
  Report Type: 
  Country: None (occurrence: None)
  Receive Date: 20080922
  Receipt Date: 20080916
  Transmission Date: 20090109
  Serious: Yes (Hospitalization)
  Sender: FDA-Public Use
  Company Number: US-B.I. PHARMACEUTICALS,INC./RIDGEFIELD-2008-BP-13865BP

PATIENT
  Sex: Female
  Weight: 72 kg

DRUGS (3)
  1. DULCOLAX [Suspect]
     Indication: CONSTIPATION
     Dosage: 15MG
     Route: 048
     Dates: start: 20080829
  2. CIPRO [Concomitant]
     Indication: PROPHYLAXIS
     Dates: start: 20080828
  3. VICODIN [Concomitant]
     Indication: PROCEDURAL PAIN
     Dates: start: 20080828

REACTIONS (2)
  - DRUG INEFFECTIVE [None]
  - URETERIC INJURY [None]
